FAERS Safety Report 25507663 (Version 1)
Quarter: 2025Q3

REPORT INFORMATION
  Report Type: Report from Study
  Country: US (occurrence: US)
  Receive Date: 20250703
  Receipt Date: 20250703
  Transmission Date: 20251021
  Serious: Yes (Other)
  Sender: VERONA PHARMA
  Company Number: US-VERONA PHARMA-VER-006996

PATIENT
  Sex: Female
  Weight: 72.57 kg

DRUGS (2)
  1. OHTUVAYRE [Suspect]
     Active Substance: ENSIFENTRINE
     Indication: Chronic obstructive pulmonary disease
     Dosage: 3 MILLIGRAM, BID
     Dates: start: 20250603, end: 20250605
  2. OXYGEN [Concomitant]
     Active Substance: OXYGEN
     Indication: Product used for unknown indication

REACTIONS (1)
  - Anaphylactic shock [Unknown]
